FAERS Safety Report 7216475-9 (Version None)
Quarter: 2011Q1

REPORT INFORMATION
  Report Type: 
  Country: None (occurrence: None)
  Receive Date: 20110107
  Receipt Date: 20110103
  Transmission Date: 20110831
  Serious: Yes (Other)
  Sender: FDA-Public Use
  Company Number: US-RB-017102-10

PATIENT
  Sex: Female

DRUGS (2)
  1. SUBOXONE [Suspect]
     Indication: DRUG DEPENDENCE
     Dosage: DOSING DETAILS UNKNOWN
     Route: 065
  2. SUBUTEX [Suspect]
     Indication: DRUG DEPENDENCE
     Dosage: DOSING DETAILS UNKNOWN
     Route: 065

REACTIONS (2)
  - ABORTION SPONTANEOUS [None]
  - DRUG EXPOSURE DURING PREGNANCY [None]
